FAERS Safety Report 12711359 (Version 2)
Quarter: 2016Q3

REPORT INFORMATION
  Report Type: Spontaneous
  Country: FR (occurrence: FR)
  Receive Date: 20160902
  Receipt Date: 20160913
  Transmission Date: 20161109
  Serious: Yes (Hospitalization, Other)
  Sender: FDA-Public Use
  Company Number: FR-PFIZER INC-2016405841

PATIENT
  Age: 75 Year
  Sex: Male

DRUGS (10)
  1. ZYLORIC [Concomitant]
     Active Substance: ALLOPURINOL
     Dosage: 200 MG, 1X/DAY IN THE MORNING
     Route: 048
  2. THERALENE [Concomitant]
     Active Substance: TRIMEPRAZINE
     Dosage: 30 GTT OF 4%, 1X/DAY IN THE EVENING
     Route: 048
     Dates: start: 20160720
  3. LEXOMIL [Concomitant]
     Active Substance: BROMAZEPAM
     Dosage: 1/4 OF A 6 MG TABLET, 1X/DAY IN THE EVENING
     Route: 048
  4. LEVOTHYROX [Concomitant]
     Active Substance: LEVOTHYROXINE
     Dosage: 125 UG, 1X/DAY IN THE MORNING
     Route: 048
  5. SPIRIVA [Concomitant]
     Active Substance: TIOTROPIUM BROMIDE MONOHYDRATE
     Dosage: 18 UG, 2X/DAY
     Route: 055
  6. ZOLOFT [Suspect]
     Active Substance: SERTRALINE HYDROCHLORIDE
     Indication: MAJOR DEPRESSION
     Dosage: 50 MG, 1X/DAY IN THE MORNING
     Route: 048
     Dates: start: 20160720
  7. KARDEGIC [Interacting]
     Active Substance: ASPIRIN LYSINE
     Indication: CEREBROVASCULAR ACCIDENT
     Dosage: 160 MG, 1X/DAY
     Route: 048
     Dates: end: 20160723
  8. NOVONORM [Concomitant]
     Active Substance: REPAGLINIDE
     Dosage: 1 MG, 3X/DAY IN THE MORNING, AT NOON, AND IN THE EVENING
     Route: 048
  9. METFORMIN [Concomitant]
     Active Substance: METFORMIN HYDROCHLORIDE
     Dosage: 500 MG, 3X/DAY IN THE MORNING, AT NOON, AND IN THE EVENING
     Route: 048
  10. SERETIDE [Concomitant]
     Active Substance: FLUTICASONE PROPIONATE\SALMETEROL XINAFOATE
     Dosage: 250 UG, 2X/DAY
     Route: 055

REACTIONS (7)
  - Drug interaction [Recovered/Resolved]
  - Pulmonary embolism [Unknown]
  - Diverticulum intestinal [Unknown]
  - Anaemia [Unknown]
  - Syncope [Unknown]
  - Hypotension [Unknown]
  - Rectal haemorrhage [Recovered/Resolved]

NARRATIVE: CASE EVENT DATE: 2016
